FAERS Safety Report 11689962 (Version 2)
Quarter: 2015Q4

REPORT INFORMATION
  Report Type: Report from Study
  Country: GE (occurrence: GE)
  Receive Date: 20151102
  Receipt Date: 20151216
  Transmission Date: 20160304
  Serious: Yes (Hospitalization)
  Sender: FDA-Public Use
  Company Number: GE-PFIZER INC-2015366783

PATIENT
  Age: 48 Year
  Sex: Female
  Weight: 63 kg

DRUGS (10)
  1. BLINDED INFLIXIMAB [Suspect]
     Active Substance: INFLIXIMAB
     Indication: RHEUMATOID ARTHRITIS
     Dosage: 315 MG, ON WEEK 0, 2, AND 6 FOLLOW UP ON MAINTENANCE REGIMEN OF EVERY 8 WEEKS
     Route: 042
     Dates: start: 20150609, end: 20150915
  2. BLINDED PF-06438179 [Suspect]
     Active Substance: INFLIXIMAB
     Indication: RHEUMATOID ARTHRITIS
     Dosage: 315 MG, ON WEEK 0, 2, AND 6 FOLLOW UP ON MAINTENANCE REGIMEN OF EVERY 8 WEEKS
     Route: 042
     Dates: start: 20150609, end: 20150915
  3. BROMISOVALUM/PHENOBARBITAL [Concomitant]
     Indication: INSOMNIA
     Dosage: 1 DF, DAILY
     Dates: start: 20150324
  4. DICLOFENAC [Concomitant]
     Active Substance: DICLOFENAC
     Indication: RHEUMATOID ARTHRITIS
     Dosage: 50 MG, TWICE DAILY
     Dates: start: 20150324
  5. BLINDED PF-06438179 [Suspect]
     Active Substance: INFLIXIMAB
     Indication: RHEUMATOID ARTHRITIS
     Dosage: 315 MG, ON WEEK 0, 2, AND 6 FOLLOW UP ON MAINTENANCE REGIMEN OF EVERY 8 WEEKS
     Route: 042
     Dates: start: 20150609, end: 20150915
  6. METHOTREXATE [Concomitant]
     Active Substance: METHOTREXATE
     Indication: RHEUMATOID ARTHRITIS
     Dosage: 10 MG, ONCE A WEEK
     Dates: start: 20150122
  7. FOLIC ACID. [Concomitant]
     Active Substance: FOLIC ACID
     Indication: RHEUMATOID ARTHRITIS
     Dosage: 1 MG, 5 TIMES A WEEK
     Dates: start: 20150122
  8. BLINDED INFLIXIMAB [Suspect]
     Active Substance: INFLIXIMAB
     Indication: RHEUMATOID ARTHRITIS
     Dosage: 315 MG, ON WEEK 0, 2, AND 6 FOLLOW UP ON MAINTENANCE REGIMEN OF EVERY 8 WEEKS
     Route: 042
     Dates: start: 20150609, end: 20150915
  9. METHYLPREDNISOLONE. [Concomitant]
     Active Substance: METHYLPREDNISOLONE
     Indication: RHEUMATOID ARTHRITIS
     Dosage: 4 MG, DAILY
     Route: 048
     Dates: start: 20150324
  10. IVABRADINE [Concomitant]
     Active Substance: IVABRADINE
     Indication: SINUS TACHYCARDIA
     Dosage: 5 MG, TWICE DAILY
     Dates: start: 20150122

REACTIONS (3)
  - Systemic inflammatory response syndrome [Recovering/Resolving]
  - Subcutaneous abscess [Recovering/Resolving]
  - Sepsis [Recovering/Resolving]

NARRATIVE: CASE EVENT DATE: 20151022
